FAERS Safety Report 4618960-2 (Version None)
Quarter: 2005Q1

REPORT INFORMATION
  Report Type: 
  Country: None (occurrence: None)
  Receive Date: 20050325
  Receipt Date: 20050315
  Transmission Date: 20050727
  Serious: Yes (Other)
  Sender: FDA-Public Use
  Company Number: AT-JNJFOC-20050305052

PATIENT
  Age: 64 Year
  Sex: Female
  Weight: 92 kg

DRUGS (5)
  1. REMICADE [Suspect]
     Indication: RHEUMATOID ARTHRITIS
     Dosage: 18 INFUSIONS.
     Route: 042
  2. METHOTREXATE [Concomitant]
     Indication: RHEUMATOID ARTHRITIS
     Route: 049
     Dates: start: 19970101, end: 20031001
  3. ALENDRONE ACID [Concomitant]
     Indication: OSTEOPOROSIS
     Route: 049
  4. FOLIC ACID [Concomitant]
     Route: 049
  5. XIPAMIDE [Concomitant]
     Indication: HYPERTENSION
     Route: 049

REACTIONS (1)
  - EXTRANODAL MARGINAL ZONE B-CELL LYMPHOMA (MALT TYPE) [None]
